FAERS Safety Report 14282021 (Version 2)
Quarter: 2018Q1

REPORT INFORMATION
  Report Type: Spontaneous
  Country: US (occurrence: US)
  Receive Date: 20171213
  Receipt Date: 20180226
  Transmission Date: 20180508
  Serious: Yes (Death, Other)
  Sender: FDA-Public Use
  Company Number: US-PFIZER INC-2017524387

PATIENT
  Age: 65 Year
  Sex: Male

DRUGS (1)
  1. ATROPINE SULFATE/DIPHENOXYLATE HYDROCHLORIDE [Suspect]
     Active Substance: ATROPINE SULFATE\DIPHENOXYLATE HYDROCHLORIDE
     Indication: DIARRHOEA
     Dosage: UNK
     Route: 048
     Dates: start: 201708, end: 201708

REACTIONS (8)
  - Drug ineffective [Unknown]
  - Skin lesion [Fatal]
  - Skin disorder [Unknown]
  - Urinary tract infection [Unknown]
  - Infection [Fatal]
  - Sepsis [Fatal]
  - Parkinson^s disease [Fatal]
  - Condition aggravated [Fatal]

NARRATIVE: CASE EVENT DATE: 201708
